FAERS Safety Report 12843517 (Version 1)
Quarter: 2016Q4

REPORT INFORMATION
  Report Type: Spontaneous
  Country: NL (occurrence: NL)
  Receive Date: 20161013
  Receipt Date: 20161013
  Transmission Date: 20170207
  Serious: Yes (Hospitalization, Other)
  Sender: FDA-Public Use
  Company Number: NL-AMGEN-NLDSP2016138471

PATIENT
  Age: 91 Year
  Sex: Female
  Weight: 50 kg

DRUGS (8)
  1. CHLOORHEXIDINE DIGLUCONAAT [Concomitant]
     Dosage: 10 ML, BID
     Dates: start: 2016, end: 2016
  2. COLECALCIFEROL [Concomitant]
     Active Substance: CHOLECALCIFEROL
     Dosage: 25000 IU, UNK
     Dates: start: 2016
  3. XGEVA [Suspect]
     Active Substance: DENOSUMAB
     Indication: OSTEOPOROSIS PROPHYLAXIS
     Dosage: 120 MG (1.7 ML), UNK
     Route: 065
     Dates: start: 20130107, end: 201506
  4. PREDNISON [Interacting]
     Active Substance: PREDNISONE
     Indication: BRAIN OEDEMA
     Dosage: 5 MG, QD
     Route: 065
     Dates: start: 201607
  5. AMOXICILLINE [Concomitant]
     Active Substance: AMOXICILLIN
     Dosage: 500 MG, TID
     Dates: start: 201609
  6. FOLIC ACID. [Concomitant]
     Active Substance: FOLIC ACID
     Dosage: 5 MG, QWK
     Dates: start: 201609
  7. LETROZOLE. [Concomitant]
     Active Substance: LETROZOLE
     Dosage: 2.5 MG, QD
     Dates: start: 2012
  8. RISPERIDONE. [Concomitant]
     Active Substance: RISPERIDONE
     Dosage: 0.5 MG, QD
     Dates: start: 2016

REACTIONS (2)
  - Osteonecrosis of jaw [Recovering/Resolving]
  - Drug interaction [Recovering/Resolving]

NARRATIVE: CASE EVENT DATE: 20160927
